FAERS Safety Report 4889838-4 (Version None)
Quarter: 2006Q1

REPORT INFORMATION
  Report Type: 
  Country: None (occurrence: None)
  Receive Date: 20060124
  Receipt Date: 20051006
  Transmission Date: 20060701
  Serious: Yes (Hospitalization, Other)
  Sender: FDA-Public Use
  Company Number: US-MERCK-0510USA05522

PATIENT
  Age: 65 Year
  Sex: Female
  Weight: 64 kg

DRUGS (1)
  1. VIOXX [Suspect]
     Indication: BACK DISORDER
     Route: 048
     Dates: start: 19990801, end: 20030101

REACTIONS (14)
  - ABDOMINAL DISCOMFORT [None]
  - ANAL SPHINCTER ATONY [None]
  - BACK PAIN [None]
  - CEREBROVASCULAR ACCIDENT [None]
  - CHRONIC SINUSITIS [None]
  - DIVERTICULUM [None]
  - GASTRITIS [None]
  - HAEMORRHOIDS [None]
  - HEPATIC CYST [None]
  - HIATUS HERNIA [None]
  - HYPERTENSION [None]
  - LACUNAR INFARCTION [None]
  - SYNCOPE [None]
  - WRIST FRACTURE [None]
